FAERS Safety Report 4719080-9 (Version None)
Quarter: 2005Q3

REPORT INFORMATION
  Report Type: 
  Country: None (occurrence: None)
  Receive Date: 20050719
  Receipt Date: 20050708
  Transmission Date: 20060218
  Serious: Yes (Other)
  Sender: FDA-Public Use
  Company Number: 2005BH000691

PATIENT
  Age: 28 Year
  Sex: Female
  Weight: 63 kg

DRUGS (1)
  1. LACTATED RINGER'S [Suspect]
     Dosage: 500 ML;ONCE; IV
     Route: 042
     Dates: start: 20050701, end: 20050701

REACTIONS (4)
  - DYSPNOEA [None]
  - EYELID OEDEMA [None]
  - HYPERSENSITIVITY [None]
  - URTICARIA [None]
